FAERS Safety Report 11117556 (Version 2)
Quarter: 2015Q3

REPORT INFORMATION
  Report Type: Spontaneous
  Country: JP (occurrence: JP)
  Receive Date: 20150517
  Receipt Date: 20150715
  Transmission Date: 20151125
  Serious: Yes (Hospitalization)
  Sender: FDA-Public Use
  Company Number: PHJP2015JP007558

PATIENT
  Age: 73 Year
  Sex: Female

DRUGS (3)
  1. L DOPA [Concomitant]
     Active Substance: LEVODOPA
     Indication: PARKINSON^S DISEASE
     Route: 065
  2. COMTAN [Suspect]
     Active Substance: ENTACAPONE
     Indication: PARKINSON^S DISEASE
     Dosage: UNK UNK, 6QD
     Route: 048
  3. COMTAN [Suspect]
     Active Substance: ENTACAPONE
     Dosage: COMTAN WAS GRADUALLY RESTARTED VIA TUBE ADMINISTRATION
     Route: 065

REACTIONS (3)
  - Wrong technique in product usage process [Unknown]
  - Cerebral haemorrhage [Recovered/Resolved]
  - General physical health deterioration [Unknown]
